FAERS Safety Report 21282810 (Version 1)
Quarter: 2022Q3

REPORT INFORMATION
  Report Type: Spontaneous
  Country: US (occurrence: None)
  Receive Date: 20220901
  Receipt Date: 20220901
  Transmission Date: 20221027
  Serious: Yes (Life-Threatening, Hospitalization)
  Sender: FDA-Public Use
  Company Number: None

PATIENT
  Age: 37 Year
  Sex: Female

DRUGS (7)
  1. ADIPEX-P [Suspect]
     Active Substance: PHENTERMINE HYDROCHLORIDE
     Indication: Overweight
     Dates: start: 20210315, end: 20210521
  2. ADIPEX-P [Suspect]
     Active Substance: PHENTERMINE HYDROCHLORIDE
     Indication: Anxiety
  3. SERTRALINE HYDROCHLORIDE [Suspect]
     Active Substance: SERTRALINE HYDROCHLORIDE
  4. LEXAPRO [Concomitant]
     Active Substance: ESCITALOPRAM OXALATE
  5. PYRIDOXINE HYDROCHLORIDE [Concomitant]
     Active Substance: PYRIDOXINE HYDROCHLORIDE
  6. TYLENOL [Concomitant]
     Active Substance: ACETAMINOPHEN
  7. IBUPROFEN [Concomitant]
     Active Substance: IBUPROFEN

REACTIONS (15)
  - Drug interaction [None]
  - Anxiety [None]
  - Serotonin syndrome [None]
  - Acute psychosis [None]
  - Mania [None]
  - Derealisation [None]
  - Abnormal behaviour [None]
  - Screaming [None]
  - Tachyphrenia [None]
  - Thinking abnormal [None]
  - Feeling abnormal [None]
  - Weight increased [None]
  - Alopecia [None]
  - Paranoia [None]
  - Job dissatisfaction [None]

NARRATIVE: CASE EVENT DATE: 20210521
